FAERS Safety Report 8711354 (Version 7)
Quarter: 2013Q2

REPORT INFORMATION
  Report Type: Report from Study
  Country: MX (occurrence: MX)
  Receive Date: 20120807
  Receipt Date: 20130621
  Transmission Date: 20140414
  Serious: Yes (Life-Threatening, Disabling, Other)
  Sender: FDA-Public Use
  Company Number: MX-AMGEN-MEXCT2012049009

PATIENT
  Age: 72 Year
  Sex: Female

DRUGS (1)
  1. DENOSUMAB [Suspect]
     Indication: OSTEOPOROSIS POSTMENOPAUSAL
     Dosage: 60 MG, Q6MO
     Route: 058
     Dates: start: 20050217

REACTIONS (3)
  - Leukopenia [Recovered/Resolved]
  - Hairy cell leukaemia [Not Recovered/Not Resolved]
  - Leukocytosis [Not Recovered/Not Resolved]
